FAERS Safety Report 12248843 (Version 1)
Quarter: 2016Q2

REPORT INFORMATION
  Report Type: Spontaneous
  Country: DE (occurrence: DE)
  Receive Date: 20160408
  Receipt Date: 20160408
  Transmission Date: 20160815
  Serious: Yes (Other)
  Sender: FDA-Public Use
  Company Number: DE-PFIZER INC-2016193246

PATIENT
  Sex: Female

DRUGS (1)
  1. SAYANA [Suspect]
     Active Substance: MEDROXYPROGESTERONE
     Dosage: UNK
     Dates: start: 2011

REACTIONS (4)
  - Amenorrhoea [Unknown]
  - Menorrhagia [Not Recovered/Not Resolved]
  - Phlebitis [Unknown]
  - Varicose vein [Unknown]

NARRATIVE: CASE EVENT DATE: 201512
